FAERS Safety Report 12956704 (Version 2)
Quarter: 2016Q4

REPORT INFORMATION
  Report Type: Spontaneous
  Country: US (occurrence: US)
  Receive Date: 20161118
  Receipt Date: 20161213
  Transmission Date: 20170207
  Serious: Yes (Other)
  Sender: FDA-Public Use
  Company Number: US-SHIRE-US201617480

PATIENT
  Age: 9 Year
  Sex: Male
  Weight: 27.1 kg

DRUGS (1)
  1. VYVANSE [Suspect]
     Active Substance: LISDEXAMFETAMINE DIMESYLATE
     Indication: ATTENTION DEFICIT/HYPERACTIVITY DISORDER
     Dosage: 20 MG, UNKNOWN
     Route: 048
     Dates: start: 20160929, end: 20161108

REACTIONS (5)
  - Aggression [Recovered/Resolved]
  - Condition aggravated [Recovering/Resolving]
  - Affect lability [Recovered/Resolved]
  - Anger [Recovering/Resolving]
  - Self-injurious ideation [Recovering/Resolving]

NARRATIVE: CASE EVENT DATE: 2016
